FAERS Safety Report 7208995-8 (Version None)
Quarter: 2011Q1

REPORT INFORMATION
  Report Type: 
  Country: None (occurrence: None)
  Receive Date: 20110104
  Receipt Date: 20101221
  Transmission Date: 20110831
  Serious: Yes (Other)
  Sender: FDA-Public Use
  Company Number: PHHY2010GB86887

PATIENT
  Age: 69 Year
  Sex: Male

DRUGS (12)
  1. MELOXICAM [Interacting]
     Indication: PAIN
     Dosage: 7.5 MG, QD
     Dates: start: 20100916
  2. RAMIPRIL [Interacting]
     Indication: HYPERTENSION
     Dosage: 1.25 MG, QD
  3. TIOTROPIUM BROMIDE [Concomitant]
  4. ACETYLSALICYLIC ACID SRT [Interacting]
     Indication: CARDIAC ARREST
     Dosage: 75 MG, QD
  5. BISOPROLOL [Suspect]
     Indication: HYPERTENSION
     Dosage: 1.25 MG, QD
  6. OMEPRAZOLE [Concomitant]
     Dosage: 20 MG, QD
  7. QUININE [Concomitant]
     Dosage: ONCE DAILY
  8. ACETYLSALICYLIC ACID SRT [Interacting]
     Indication: MYOCARDIAL INFARCTION
  9. ISOSORBIDE DINITRATE [Concomitant]
     Dosage: 10 MG
  10. STEROIDS NOS [Concomitant]
     Indication: PLEURISY
  11. VENTOLIN [Concomitant]
     Dosage: 100 MG, PER ACTUATION
  12. SERETIDE [Concomitant]
     Dosage: 500 MG, QD

REACTIONS (8)
  - CONFUSIONAL STATE [None]
  - CHROMATURIA [None]
  - HALLUCINATION [None]
  - DEPRESSED LEVEL OF CONSCIOUSNESS [None]
  - DRUG INTERACTION [None]
  - EYE MOVEMENT DISORDER [None]
  - DIARRHOEA [None]
  - DELIRIUM [None]
